FAERS Safety Report 6712962-8 (Version None)
Quarter: 2010Q2

REPORT INFORMATION
  Report Type: 
  Country: None (occurrence: None)
  Receive Date: 20100506
  Receipt Date: 20100429
  Transmission Date: 20101027
  Serious: Yes (Hospitalization, Other)
  Sender: FDA-Public Use
  Company Number: GB-NOVOPROD-305235

PATIENT
  Sex: Male

DRUGS (11)
  1. VICTOZA [Suspect]
     Indication: TYPE 2 DIABETES MELLITUS
     Dosage: 1.2 MG, QD
     Route: 058
     Dates: start: 20091125, end: 20100305
  2. VICTOZA [Suspect]
     Indication: OBESITY
  3. SIMVASTATIN [Concomitant]
     Dosage: 40 MG, QD
     Route: 048
  4. METFORMIN [Concomitant]
     Dosage: 1000 MG, BID
     Route: 048
  5. WARFARIN [Concomitant]
     Dosage: UNK
  6. SPIRONOLACTONE [Concomitant]
     Dosage: 25 MG, QD
     Route: 048
  7. TELMISARTAN [Concomitant]
     Dosage: 40 MG, QD
     Route: 048
  8. ATENOLOL [Concomitant]
     Dosage: 100 MG, QD
     Route: 048
  9. FUROSEMIDE [Concomitant]
     Dosage: 80 MG, BID
     Route: 048
  10. TOLTERODINE TARTRATE [Concomitant]
     Dosage: 2 MG, BID
     Route: 048
  11. TOPAL [Concomitant]
     Dosage: 3 TABLETS PRN
     Route: 048

REACTIONS (1)
  - RENAL FAILURE [None]
